FAERS Safety Report 11980757 (Version 2)
Quarter: 2016Q1

REPORT INFORMATION
  Report Type: Spontaneous
  Country: JP (occurrence: JP)
  Receive Date: 20160129
  Receipt Date: 20160225
  Transmission Date: 20160526
  Serious: Yes (Other)
  Sender: FDA-Public Use
  Company Number: JP-MALLINCKRODT-T201502120

PATIENT
  Age: 46 Year
  Sex: Male
  Weight: 55 kg

DRUGS (16)
  1. METHADONE [Suspect]
     Active Substance: METHADONE HYDROCHLORIDE
     Dosage: 10 MG, (30 MG DAILY DOSE)
     Route: 048
     Dates: start: 20150528
  2. OXINORM [Suspect]
     Active Substance: OXYCODONE HYDROCHLORIDE
     Indication: ANALGESIC THERAPY
     Dosage: 5MG, P.R.N.
     Route: 048
     Dates: start: 20150301, end: 20150311
  3. VOLTAREN [Concomitant]
     Active Substance: DICLOFENAC SODIUM
     Dosage: 75MG
     Route: 048
  4. BARACLUDE [Concomitant]
     Active Substance: ENTECAVIR
     Dosage: 0.5MG
     Route: 048
  5. SENNOSIDE [Concomitant]
     Active Substance: SENNOSIDES
     Dosage: 24MG
     Route: 048
     Dates: start: 20150402
  6. METHADONE [Suspect]
     Active Substance: METHADONE HYDROCHLORIDE
     Indication: CANCER PAIN
     Dosage: 5MG, (15MG DAILY DOSE)
     Route: 048
     Dates: start: 20150302, end: 20150309
  7. METHADONE [Suspect]
     Active Substance: METHADONE HYDROCHLORIDE
     Dosage: 10MG, (20MG DAILY DOSE)
     Route: 048
     Dates: start: 20150310, end: 20150527
  8. LIVACT [Concomitant]
     Active Substance: AMINO ACIDS
     Dosage: 12.45 G
     Route: 048
  9. MAGMITT [Concomitant]
     Active Substance: MAGNESIUM OXIDE
     Dosage: 330MG
     Route: 048
  10. RANMARK [Concomitant]
     Active Substance: DENOSUMAB
     Indication: ANALGESIC THERAPY
     Dosage: 120 MG
     Route: 058
  11. OXINORM [Suspect]
     Active Substance: OXYCODONE HYDROCHLORIDE
     Dosage: 10MG, P.R.N.
     Route: 048
     Dates: start: 20150312
  12. LANSOPRAZOLE. [Concomitant]
     Active Substance: LANSOPRAZOLE
     Dosage: 15MG
     Route: 048
  13. REBAMIPIDE [Concomitant]
     Active Substance: REBAMIPIDE
     Dosage: 200MG
     Route: 048
  14. ALFAROL [Concomitant]
     Active Substance: ALFACALCIDOL
     Dosage: 1MCG
     Route: 048
  15. RINDERON V [Concomitant]
     Active Substance: BETAMETHASONE VALERATE
     Dosage: 1.0 MG
     Route: 048
     Dates: start: 20150528
  16. LYRICA [Concomitant]
     Active Substance: PREGABALIN
     Dosage: 300MG
     Route: 048

REACTIONS (2)
  - Hyperkalaemia [Not Recovered/Not Resolved]
  - Nausea [Not Recovered/Not Resolved]

NARRATIVE: CASE EVENT DATE: 20150314
